FAERS Safety Report 7807359-3 (Version None)
Quarter: 2011Q4

REPORT INFORMATION
  Report Type: 
  Country: None (occurrence: None)
  Receive Date: 20111011
  Receipt Date: 20110930
  Transmission Date: 20120403
  Serious: Yes (Hospitalization)
  Sender: FDA-Public Use
  Company Number: US-NOVOPROD-322095

PATIENT
  Sex: Male
  Weight: 85.533 kg

DRUGS (11)
  1. MAGNESIUM OXIDE [Concomitant]
     Dosage: 2500 MG, QD
     Route: 048
  2. LIRAGLUTIDE FLEXPEN [Suspect]
     Indication: TYPE 2 DIABETES MELLITUS
     Dosage: 0.6 MG, QD
     Route: 058
     Dates: start: 20101221, end: 20110118
  3. COZAAR [Concomitant]
     Dosage: 25 MG, QD
     Route: 048
  4. METFORMIN HYDROCHLORIDE [Concomitant]
     Dosage: 500 MG, QD
     Route: 048
  5. CARVEDILOL [Concomitant]
     Dosage: 3.125 MG, BID
     Route: 048
  6. LIRAGLUTIDE FLEXPEN [Suspect]
     Dosage: 0.6 MG, QD
     Route: 058
     Dates: start: 20110930
  7. SUCRALFATE [Concomitant]
     Dosage: 1 TAB, BEFORE MEALS
     Route: 048
  8. CARAFATE [Concomitant]
  9. SIMVASTATIN [Concomitant]
     Dosage: 20 MG, QD
     Route: 048
  10. MULTIVITAMIN                       /00097801/ [Concomitant]
     Dosage: 1 TAB, QD
     Route: 048
  11. GLYBURIDE [Concomitant]
     Dosage: 10 MG, BID
     Route: 048

REACTIONS (1)
  - SYNCOPE [None]
